FAERS Safety Report 7821459-3 (Version None)
Quarter: 2011Q4

REPORT INFORMATION
  Report Type: 
  Country: None (occurrence: None)
  Receive Date: 20111018
  Receipt Date: 20111011
  Transmission Date: 20120403
  Serious: Yes (Hospitalization, Disabling, Other)
  Sender: FDA-Public Use
  Company Number: US-ACTELION-A-NJ2011-54729

PATIENT

DRUGS (3)
  1. ACIPHEX [Concomitant]
  2. TRACLEER [Suspect]
     Indication: PULMONARY ARTERIAL HYPERTENSION
     Dosage: 125 MG, BID
     Route: 048
     Dates: start: 20091016
  3. IMDUR [Concomitant]

REACTIONS (2)
  - NEPHROLITHIASIS [None]
  - FLANK PAIN [None]
